FAERS Safety Report 16856471 (Version 1)
Quarter: 2019Q3

REPORT INFORMATION
  Report Type: Spontaneous
  Country: US (occurrence: US)
  Receive Date: 20190926
  Receipt Date: 20190926
  Transmission Date: 20191005
  Serious: No
  Sender: FDA-Public Use
  Company Number: US-ALYVANT THERAPEUTICS, INC.-2019ALY00007

PATIENT
  Age: 84 Year
  Sex: Male
  Weight: 67.12 kg

DRUGS (1)
  1. NOCTIVA [Suspect]
     Active Substance: DESMOPRESSIN ACETATE
     Indication: NOCTURIA
     Dosage: 1.66 ?G, 1X/DAY 30 MIN PRIOR TO BED
     Route: 045
     Dates: start: 20190731, end: 20190814

REACTIONS (1)
  - Blood sodium decreased [Recovered/Resolved]

NARRATIVE: CASE EVENT DATE: 201908
